FAERS Safety Report 5743095-5 (Version None)
Quarter: 2008Q2

REPORT INFORMATION
  Report Type: 
  Country: None (occurrence: None)
  Receive Date: 20080519
  Receipt Date: 20080507
  Transmission Date: 20081010
  Serious: Yes (Hospitalization, Congenital Anomaly, Other)
  Sender: FDA-Public Use
  Company Number: US-ELI_LILLY_AND_COMPANY-US200706005451

PATIENT
  Weight: 2.068 kg

DRUGS (5)
  1. CYMBALTA [Suspect]
     Dosage: UNK, UNK
     Route: 064
     Dates: start: 20060501, end: 20070107
  2. ZANTAC [Concomitant]
     Dosage: UNK, UNK
     Route: 064
     Dates: start: 20060501, end: 20070101
  3. VITAMIN TAB [Concomitant]
     Dosage: UNK, UNK
     Route: 064
     Dates: start: 20060601, end: 20070201
  4. ZYRTEC [Concomitant]
     Route: 064
  5. FOLIC ACID [Concomitant]
     Route: 064

REACTIONS (13)
  - APNOEA [None]
  - BRADYCARDIA NEONATAL [None]
  - BRONCHIOLITIS [None]
  - CHOKING [None]
  - DECREASED APPETITE [None]
  - DIARRHOEA [None]
  - DRUG EXPOSURE DURING PREGNANCY [None]
  - EAR INFECTION [None]
  - PATENT DUCTUS ARTERIOSUS [None]
  - PREMATURE BABY [None]
  - PULMONARY VALVE STENOSIS [None]
  - RESPIRATORY TRACT INFECTION [None]
  - SMALL FOR DATES BABY [None]
